FAERS Safety Report 7634598-7 (Version None)
Quarter: 2011Q3

REPORT INFORMATION
  Report Type: 
  Country: None (occurrence: None)
  Receive Date: 20110725
  Receipt Date: 20090915
  Transmission Date: 20111222
  Serious: Yes (Death)
  Sender: FDA-Public Use
  Company Number: US-AMGEN-US362761

PATIENT
  Age: 68 Year
  Sex: Female

DRUGS (4)
  1. CORTICOSTEROID NOS [Concomitant]
     Dosage: UNK UNK, UNK
     Route: 065
     Dates: start: 20080911
  2. DANAZOL [Concomitant]
     Dosage: UNK UNK, UNK
     Route: 065
     Dates: start: 20080819
  3. NPLATE [Suspect]
     Dosage: 1 A?G/KG, UNK
     Dates: start: 20081002, end: 20081002
  4. NPLATE [Suspect]
     Indication: IDIOPATHIC THROMBOCYTOPENIC PURPURA
     Dosage: UNK UNK, QWK
     Route: 065
     Dates: start: 20081002

REACTIONS (1)
  - RESPIRATORY FAILURE [None]
